FAERS Safety Report 14563268 (Version 3)
Quarter: 2018Q1

REPORT INFORMATION
  Report Type: Spontaneous
  Country: JP (occurrence: JP)
  Receive Date: 20180222
  Receipt Date: 20180319
  Transmission Date: 20180509
  Serious: Yes (Hospitalization)
  Sender: FDA-Public Use
  Company Number: JP-GLAXOSMITHKLINE-JP2018JPN026964

PATIENT
  Age: 37 Year
  Sex: Male

DRUGS (4)
  1. LAMICTAL [Suspect]
     Active Substance: LAMOTRIGINE
     Dosage: 2800 MG, SINGLE
     Route: 048
     Dates: start: 201802
  2. LIMAS [Concomitant]
     Active Substance: LITHIUM CARBONATE
     Dosage: UNK
  3. LAMICTAL [Suspect]
     Active Substance: LAMOTRIGINE
     Dosage: 25 MG, 1D
     Route: 048
     Dates: start: 20180224
  4. LAMICTAL [Suspect]
     Active Substance: LAMOTRIGINE
     Indication: BIPOLAR DISORDER
     Dosage: 400 MG, 1D
     Route: 048

REACTIONS (2)
  - Overdose [Unknown]
  - Sedation [Recovered/Resolved]

NARRATIVE: CASE EVENT DATE: 201802
